FAERS Safety Report 10709405 (Version 1)
Quarter: 2015Q1

REPORT INFORMATION
  Report Type: Spontaneous
  Country: US (occurrence: None)
  Receive Date: 20150113
  Receipt Date: 20150113
  Transmission Date: 20150721
  Serious: No
  Sender: FDA-Public Use
  Company Number: None

PATIENT
  Age: 2 Year
  Sex: Female
  Weight: 14.3 kg

DRUGS (2)
  1. CYTARABINE. [Suspect]
     Active Substance: CYTARABINE
     Dosage: IT ARAC WAS GIVEN ON 12/22/2014 AND HD ARAC WAS GIVEN ON 12/25 - 12/29/2014
     Dates: start: 20141229
  2. ETOPOSIDE (VP-16) [Suspect]
     Active Substance: ETOPOSIDE
     Dates: start: 20141229

REACTIONS (11)
  - Upper respiratory tract infection [None]
  - Acute respiratory failure [None]
  - Tachycardia [None]
  - Bronchospasm [None]
  - Septic shock [None]
  - Candida infection [None]
  - Lymphadenitis [None]
  - Diarrhoea [None]
  - Liver function test abnormal [None]
  - Hypertension [None]
  - Staphylococcus test positive [None]

NARRATIVE: CASE EVENT DATE: 20150106
